FAERS Safety Report 20768554 (Version 2)
Quarter: 2022Q2

REPORT INFORMATION
  Report Type: Spontaneous
  Country: CN (occurrence: CN)
  Receive Date: 20220429
  Receipt Date: 20220609
  Transmission Date: 20220721
  Serious: No
  Sender: FDA-Public Use
  Company Number: CN-SA-SAC20220427000527

PATIENT
  Age: 51 Year
  Sex: Male
  Weight: 40.5 kg

DRUGS (10)
  1. LANTUS [Suspect]
     Active Substance: INSULIN GLARGINE
     Indication: Diabetic ketoacidosis
     Dosage: 14 IU
     Route: 058
     Dates: start: 20220408, end: 20220408
  2. LANTUS [Suspect]
     Active Substance: INSULIN GLARGINE
     Indication: Metabolic acidosis
  3. LANTUS [Suspect]
     Active Substance: INSULIN GLARGINE
     Indication: Metabolic disorder
  4. LANTUS [Suspect]
     Active Substance: INSULIN GLARGINE
     Indication: Diabetic nephropathy
  5. FUROSEMIDE [Concomitant]
     Active Substance: FUROSEMIDE
     Indication: Polyuria
     Dosage: 20 MG
     Route: 048
     Dates: start: 20220411
  6. FUROSEMIDE [Concomitant]
     Active Substance: FUROSEMIDE
     Dosage: 20 MG
     Route: 042
     Dates: start: 20220412
  7. SPIRONOLACTONE [Concomitant]
     Active Substance: SPIRONOLACTONE
     Dosage: 20 MG
     Route: 048
     Dates: start: 20220412
  8. LEVOCETIRIZINE [Concomitant]
     Active Substance: LEVOCETIRIZINE
     Dosage: 5 MG
     Route: 048
     Dates: start: 20220413
  9. VITAMIN C [Concomitant]
     Active Substance: ASCORBIC ACID
     Dosage: 0.1 G
     Route: 048
     Dates: start: 20220413
  10. LORATADINE [Concomitant]
     Active Substance: LORATADINE
     Indication: Antiallergic therapy
     Dosage: 5 MG
     Route: 048
     Dates: start: 20220415

REACTIONS (1)
  - Oedema peripheral [Recovering/Resolving]

NARRATIVE: CASE EVENT DATE: 20220408
